FAERS Safety Report 9720739 (Version 1)
Quarter: 2013Q4

REPORT INFORMATION
  Report Type: Report from Study
  Country: BR (occurrence: BR)
  Receive Date: 20131129
  Receipt Date: 20131129
  Transmission Date: 20140711
  Serious: Yes (Death, Other)
  Sender: FDA-Public Use
  Company Number: PHHY2013BR137480

PATIENT
  Sex: Female
  Weight: 62 kg

DRUGS (2)
  1. DIOVAN HCT [Suspect]
     Indication: HYPERTENSION
     Dosage: 1 DF, QD (160 MG VALS AND 25 MG HYDR) IN THE MORNING
     Route: 048
  2. AZOPT [Suspect]
     Indication: GLAUCOMA
     Dosage: (ONE DROP IN EACH EYE)

REACTIONS (3)
  - Cardiac arrest [Fatal]
  - Cerebrovascular accident [Fatal]
  - Blindness [Unknown]
